FAERS Safety Report 7296625-9 (Version None)
Quarter: 2011Q1

REPORT INFORMATION
  Report Type: 
  Country: None (occurrence: None)
  Receive Date: 20110216
  Receipt Date: 20110208
  Transmission Date: 20110831
  Serious: Yes (Death, Hospitalization, Other)
  Sender: FDA-Public Use
  Company Number: PHHY2010JP88945

PATIENT
  Sex: Male
  Weight: 54 kg

DRUGS (18)
  1. LUPRAC [Concomitant]
     Indication: DIABETES MELLITUS
     Dosage: 8 MG, UNK
     Route: 048
  2. AFINITOR [Suspect]
     Dosage: 7.5 MG, QD
     Route: 048
     Dates: start: 20101118, end: 20101217
  3. AZUNOL [Concomitant]
     Dosage: 4 %, UNK
     Route: 048
  4. CLINORIL [Concomitant]
     Route: 048
     Dates: start: 20101127, end: 20101224
  5. AFINITOR [Suspect]
     Dosage: 5 MG, QD
     Route: 048
     Dates: start: 20101113, end: 20101117
  6. NU-LOTAN [Concomitant]
     Indication: DIABETES MELLITUS
     Dosage: 50 MG, UNK
     Route: 048
  7. FERROUS CITRATE [Concomitant]
     Indication: DIABETES MELLITUS
     Dosage: 50 MG, UNK
     Route: 048
     Dates: end: 20101224
  8. OXINORM [Concomitant]
     Route: 048
     Dates: end: 20101224
  9. DUROTEP JANSSEN [Concomitant]
     Dosage: 6.3 MG, TID
     Dates: end: 20101224
  10. MYSLEE [Concomitant]
     Route: 048
     Dates: end: 20101224
  11. VILDAGLIPTIN [Concomitant]
     Indication: DIABETES MELLITUS
     Dosage: 50 MG, UNK
     Route: 048
  12. AMLODIPINE [Concomitant]
     Indication: DIABETES MELLITUS
     Dosage: 2.5 MG, UNK
     Route: 048
  13. OMEPRAL [Concomitant]
     Indication: DIABETES MELLITUS
     Dosage: 20 MG, UNK
     Route: 048
     Dates: end: 20101224
  14. ACETAMINOPHEN [Concomitant]
     Dosage: 0.6 MG, UNK
     Route: 048
     Dates: end: 20101224
  15. ALDACTONE [Concomitant]
     Dosage: 50 MG, UNK
     Route: 048
     Dates: start: 20101207, end: 20101224
  16. LASIX [Concomitant]
     Dosage: 40 MG, UNK
     Route: 048
     Dates: end: 20101224
  17. AFINITOR [Suspect]
     Indication: RENAL CELL CARCINOMA
     Dosage: 10 MG, QD
     Route: 048
     Dates: start: 20101026, end: 20101105
  18. INTERFERON ALFA [Concomitant]
     Dosage: UNK
     Route: 042
     Dates: start: 20100922, end: 20101018

REACTIONS (3)
  - RENAL IMPAIRMENT [None]
  - NEOPLASM MALIGNANT [None]
  - HAEMOGLOBIN DECREASED [None]
